FAERS Safety Report 15180906 (Version 1)
Quarter: 2018Q3

REPORT INFORMATION
  Report Type: Spontaneous
  Country: US (occurrence: US)
  Receive Date: 20180723
  Receipt Date: 20180723
  Transmission Date: 20181010
  Serious: No
  Sender: FDA-Public Use
  Company Number: US-TEVA-2018-US-929734

PATIENT
  Sex: Female

DRUGS (2)
  1. SOTALOL. [Suspect]
     Active Substance: SOTALOL
     Dates: start: 2010
  2. SOTALOL. [Suspect]
     Active Substance: SOTALOL
     Indication: BLOOD PRESSURE MEASUREMENT
     Dates: start: 2010

REACTIONS (2)
  - Wrong technique in product usage process [Unknown]
  - Blood pressure increased [Unknown]

NARRATIVE: CASE EVENT DATE: 2010
